FAERS Safety Report 25014759 (Version 3)
Quarter: 2025Q1

REPORT INFORMATION
  Report Type: Spontaneous
  Country: FR (occurrence: FR)
  Receive Date: 20250226
  Receipt Date: 20250328
  Transmission Date: 20250409
  Serious: Yes (Life-Threatening)
  Sender: TEVA
  Company Number: None

PATIENT
  Age: 71 Year
  Sex: Male
  Weight: 88 kg

DRUGS (15)
  1. OCTREOTIDE [Suspect]
     Active Substance: OCTREOTIDE
     Indication: Tumour of ampulla of Vater
     Route: 058
     Dates: start: 20241230, end: 20250109
  2. MICAFUNGIN [Suspect]
     Active Substance: MICAFUNGIN SODIUM
     Indication: Lung disorder
     Dosage: MICAFUNGINE
     Route: 042
     Dates: start: 20250103, end: 20250104
  3. ERYTHROMYCIN [Suspect]
     Active Substance: ERYTHROMYCIN
     Indication: Impaired gastric emptying
     Route: 042
     Dates: start: 20241230, end: 20250103
  4. PROPOFOL [Suspect]
     Active Substance: PROPOFOL
     Indication: Sedation
     Route: 042
     Dates: start: 20250103, end: 20250113
  5. ENOXAPARIN [Suspect]
     Active Substance: ENOXAPARIN
     Indication: Thrombosis prophylaxis
     Dosage: ENOXAPARIN SODIUM ((MAMMAL/PIG/INTESTINAL MUCOSA))
     Route: 058
     Dates: start: 20241230, end: 20250109
  6. OXYCODONE [Suspect]
     Active Substance: OXYCODONE
     Indication: Pain
     Route: 042
     Dates: start: 20250102, end: 20250103
  7. DIAZEPAM [Suspect]
     Active Substance: DIAZEPAM
     Indication: Anxiety
     Route: 042
     Dates: start: 20250103, end: 20250104
  8. PIPERACILLIN SODIUM\TAZOBACTAM SODIUM [Suspect]
     Active Substance: PIPERACILLIN SODIUM\TAZOBACTAM SODIUM
     Indication: Lung disorder
     Route: 042
     Dates: start: 20250101, end: 20250102
  9. MEROPENEM [Suspect]
     Active Substance: MEROPENEM
     Indication: Lung disorder
     Route: 042
     Dates: start: 20250103, end: 20250111
  10. PANTOPRAZOLE [Suspect]
     Active Substance: PANTOPRAZOLE
     Indication: Prophylaxis against gastrointestinal ulcer
     Route: 042
     Dates: end: 20250113
  11. NEFOPAM [Suspect]
     Active Substance: NEFOPAM
     Indication: Pain
     Dosage: NEFOPAM (HYDROCHLORIDE)
     Route: 042
     Dates: start: 20241231, end: 20250101
  12. INSULIN NOS [Suspect]
     Active Substance: INSULIN NOS
     Indication: Type 2 diabetes mellitus
     Route: 042
     Dates: start: 20241230
  13. LINEZOLID [Suspect]
     Active Substance: LINEZOLID
     Indication: Lung disorder
     Route: 042
     Dates: start: 20250103, end: 20250104
  14. ACETAMINOPHEN [Suspect]
     Active Substance: ACETAMINOPHEN
     Indication: Pain
     Route: 042
     Dates: start: 20241230, end: 20250105
  15. HEPARIN SODIUM [Suspect]
     Active Substance: HEPARIN SODIUM
     Indication: Thrombosis prophylaxis
     Route: 042
     Dates: start: 20250102, end: 20250115

REACTIONS (2)
  - Anti factor V antibody [Not Recovered/Not Resolved]
  - Shock haemorrhagic [Recovering/Resolving]

NARRATIVE: CASE EVENT DATE: 20250107
